FAERS Safety Report 9725556 (Version 1)
Quarter: 2013Q4

REPORT INFORMATION
  Report Type: Spontaneous
  Country: DE (occurrence: DE)
  Receive Date: 20131203
  Receipt Date: 20131203
  Transmission Date: 20140711
  Serious: Yes (Other)
  Sender: FDA-Public Use
  Company Number: PHHY2013DE139722

PATIENT
  Sex: Female

DRUGS (2)
  1. EXELON PATCH [Suspect]
     Indication: HALLUCINATION
     Dosage: 4.6 MG, DAILY
     Route: 062
     Dates: start: 2013
  2. EXELON PATCH [Suspect]
     Indication: OFF LABEL USE

REACTIONS (2)
  - Rib fracture [Unknown]
  - Fall [Unknown]
